FAERS Safety Report 5317535-X (Version None)
Quarter: 2007Q2

REPORT INFORMATION
  Report Type: 
  Country: None (occurrence: None)
  Receive Date: 20070507
  Receipt Date: 20070424
  Transmission Date: 20071010
  Serious: Yes (Other)
  Sender: FDA-Public Use
  Company Number: PHNR2007AU01043

PATIENT
  Age: 8 Year
  Sex: Male

DRUGS (2)
  1. RITALIN [Suspect]
     Route: 048
     Dates: start: 20070423
  2. RITALIN [Suspect]
     Dosage: UNK, UNK
     Route: 048
     Dates: start: 20030101, end: 20070201

REACTIONS (5)
  - DUODENAL SCARRING [None]
  - ENDOSCOPY [None]
  - INFECTION [None]
  - VOMITING [None]
  - WEIGHT DECREASED [None]
